FAERS Safety Report 19533962 (Version 2)
Quarter: 2021Q3

REPORT INFORMATION
  Report Type: Spontaneous
  Country: CA (occurrence: CA)
  Receive Date: 20210714
  Receipt Date: 20210720
  Transmission Date: 20211014
  Serious: Yes (Other)
  Sender: FDA-Public Use
  Company Number: CA-JNJFOC-20210720051

PATIENT
  Age: 42 Year
  Sex: Female
  Weight: 72 kg

DRUGS (7)
  1. PREDNISONE. [Suspect]
     Active Substance: PREDNISONE
  2. SULFASALAZINE. [Concomitant]
     Active Substance: SULFASALAZINE
  3. SIMPONI [Suspect]
     Active Substance: GOLIMUMAB
     Indication: PRODUCT USED FOR UNKNOWN INDICATION
     Route: 058
  4. PLAQUENIL [HYDROXYCHLOROQUINE PHOSPHATE] [Suspect]
     Active Substance: HYDROXYCHLOROQUINE DIPHOSPHATE
  5. METHOTREXATE. [Concomitant]
     Active Substance: METHOTREXATE
  6. TYLENOL [Concomitant]
     Active Substance: ACETAMINOPHEN
  7. RINVOQ [Suspect]
     Active Substance: UPADACITINIB

REACTIONS (4)
  - Decreased appetite [Unknown]
  - Seizure [Unknown]
  - Weight decreased [Unknown]
  - Drug ineffective [Unknown]
